FAERS Safety Report 4849892-2 (Version None)
Quarter: 2005Q4

REPORT INFORMATION
  Report Type: 
  Country: None (occurrence: None)
  Receive Date: 20051114
  Receipt Date: 20050825
  Transmission Date: 20060501
  Serious: Yes (Other)
  Sender: FDA-Public Use
  Company Number: 20134

PATIENT
  Age: 31 Year
  Sex: Female
  Weight: 58.9676 kg

DRUGS (2)
  1. PROPOFOL [Suspect]
     Indication: BUNION OPERATION
     Dosage: 350 MG/IV
     Route: 042
     Dates: start: 20050825
  2. VERSED [Concomitant]

REACTIONS (1)
  - MUSCLE TWITCHING [None]
